FAERS Safety Report 5112549-7 (Version None)
Quarter: 2006Q3

REPORT INFORMATION
  Report Type: 
  Country: None (occurrence: None)
  Receive Date: 20060922
  Receipt Date: 20060912
  Transmission Date: 20061208
  Serious: Yes (Hospitalization)
  Sender: FDA-Public Use
  Company Number: ES-ABBOTT-06P-144-0343783-00

PATIENT
  Age: 60 Year
  Sex: Female

DRUGS (2)
  1. FENOFIBRATE [Suspect]
     Indication: HYPERTRIGLYCERIDAEMIA
     Route: 048
     Dates: start: 20031201, end: 20031214
  2. RALOXIFENE HCL [Interacting]
     Indication: OSTEOPOROSIS PROPHYLAXIS
     Dates: start: 20000101, end: 20031214

REACTIONS (6)
  - CHOLESTASIS [None]
  - DRUG INTERACTION [None]
  - ERYTHEMA [None]
  - HEPATOCELLULAR DAMAGE [None]
  - HEPATOTOXICITY [None]
  - INVESTIGATION ABNORMAL [None]
